FAERS Safety Report 7425261-6 (Version None)
Quarter: 2011Q2

REPORT INFORMATION
  Report Type: 
  Country: None (occurrence: None)
  Receive Date: 20110420
  Receipt Date: 20101122
  Transmission Date: 20111010
  Serious: Yes (Other)
  Sender: FDA-Public Use
  Company Number: US-BAYER-201031854NA

PATIENT
  Age: 18 Year
  Sex: Female
  Weight: 133.79 kg

DRUGS (11)
  1. CIPROFLOXACIN [Concomitant]
  2. OCELLA [Suspect]
     Indication: POLYCYSTIC OVARIES
     Dosage: UNK
     Dates: start: 20080101, end: 20080101
  3. MAXALT [Concomitant]
     Route: 048
  4. FLAGYL [Concomitant]
     Route: 048
  5. HYDROCHLOROTHIAZIDE [Concomitant]
     Dosage: 25 MG, QD
     Route: 048
  6. TOPAMAX [Concomitant]
     Dosage: 50 MG, QD
  7. LORTAB [Concomitant]
     Route: 048
  8. ADIPEX [Concomitant]
     Indication: WEIGHT DECREASED
  9. PHENERGAN HCL [Concomitant]
  10. ZYRTEC [Concomitant]
     Dosage: 10 MG, QD
     Route: 048
  11. YASMIN [Suspect]
     Indication: POLYCYSTIC OVARIES
     Dosage: UNK
     Dates: start: 20061101, end: 20080101

REACTIONS (2)
  - CHOLELITHIASIS [None]
  - CHOLECYSTITIS CHRONIC [None]
